FAERS Safety Report 20886944 (Version 2)
Quarter: 2022Q3

REPORT INFORMATION
  Report Type: Report from Study
  Country: CA (occurrence: CA)
  Receive Date: 20220528
  Receipt Date: 20220705
  Transmission Date: 20221026
  Serious: Yes (Hospitalization, Other)
  Sender: FDA-Public Use
  Company Number: CA-ABBVIE-22K-028-4291975-00

PATIENT
  Sex: Male

DRUGS (2)
  1. HUMIRA [Suspect]
     Active Substance: ADALIMUMAB
     Indication: Crohn^s disease
     Route: 058
     Dates: start: 20211210, end: 202202
  2. HUMIRA [Suspect]
     Active Substance: ADALIMUMAB
     Indication: Crohn^s disease
     Route: 058
     Dates: start: 20220218, end: 20220603

REACTIONS (4)
  - Gastrointestinal obstruction [Recovering/Resolving]
  - Device difficult to use [Unknown]
  - Gait disturbance [Unknown]
  - Injection site pain [Unknown]
